FAERS Safety Report 4422470-5 (Version None)
Quarter: 2004Q3

REPORT INFORMATION
  Report Type: 
  Country: None (occurrence: None)
  Receive Date: 20040804
  Receipt Date: 20040722
  Transmission Date: 20050211
  Serious: Yes (Hospitalization)
  Sender: FDA-Public Use
  Company Number: WAES 0407USA02263

PATIENT
  Age: 64 Year
  Sex: Female

DRUGS (14)
  1. INJ 0826-BLINDED THERAPY UNK [Suspect]
     Indication: INFECTION PROPHYLAXIS
     Dosage: IV
     Route: 042
     Dates: start: 20040712, end: 20040712
  2. ANZEMET [Concomitant]
  3. ATROVENT [Concomitant]
  4. GOLYTELY [Concomitant]
  5. PEPCID [Concomitant]
  6. TYLENOL [Concomitant]
  7. VERSED [Concomitant]
  8. BACITRACIN [Concomitant]
  9. BUPIVACAINE HCL [Concomitant]
  10. HEPARIN [Concomitant]
  11. HYDROMORPHONE HYDROCHLORIDE [Concomitant]
  12. METOPROLOL [Concomitant]
  13. MORPHINE [Concomitant]
  14. POTASSIUM CHLORIDE [Concomitant]

REACTIONS (5)
  - BETA HAEMOLYTIC STREPTOCOCCAL INFECTION [None]
  - POSTOPERATIVE FEVER [None]
  - RESPIRATORY TRACT INFECTION [None]
  - STAPHYLOCOCCAL INFECTION [None]
  - WOUND INFECTION [None]
